FAERS Safety Report 13603242 (Version 2)
Quarter: 2017Q4

REPORT INFORMATION
  Report Type: Spontaneous
  Country: US (occurrence: US)
  Receive Date: 20170601
  Receipt Date: 20171006
  Transmission Date: 20180320
  Serious: Yes (Death)
  Sender: FDA-Public Use
  Company Number: US-LUNDBECK-DKLU2031937

PATIENT
  Age: 3 Year
  Sex: Male

DRUGS (3)
  1. SABRIL [Suspect]
     Active Substance: VIGABATRIN
     Indication: SEIZURE
     Route: 048
     Dates: start: 20140505
  2. SABRIL [Suspect]
     Active Substance: VIGABATRIN
     Route: 065
     Dates: end: 201703
  3. SABRIL [Suspect]
     Active Substance: VIGABATRIN
     Route: 065
     Dates: end: 201703

REACTIONS (7)
  - Lissencephaly [Fatal]
  - Discomfort [Unknown]
  - Irritability [Unknown]
  - Cardio-respiratory arrest [Fatal]
  - Agitation [Unknown]
  - Seizure [Fatal]
  - Screaming [Unknown]

NARRATIVE: CASE EVENT DATE: 20170312
